FAERS Safety Report 23784732 (Version 1)
Quarter: 2024Q2

REPORT INFORMATION
  Report Type: Spontaneous
  Country: CN (occurrence: CN)
  Receive Date: 20240425
  Receipt Date: 20240425
  Transmission Date: 20240716
  Serious: Yes (Other)
  Sender: FDA-Public Use
  Company Number: CN-009507513-2404CHN010536

PATIENT
  Age: 77 Year
  Sex: Male
  Weight: 50 kg

DRUGS (1)
  1. CILASTATIN SODIUM\IMIPENEM [Suspect]
     Active Substance: CILASTATIN SODIUM\IMIPENEM
     Indication: Pneumonia
     Dosage: 1 G, Q6H
     Route: 041
     Dates: start: 20240318, end: 20240320

REACTIONS (2)
  - Gastrointestinal tube insertion [Unknown]
  - Muscle twitching [Recovering/Resolving]

NARRATIVE: CASE EVENT DATE: 20240301
